FAERS Safety Report 9828194 (Version 2)
Quarter: 2014Q1

REPORT INFORMATION
  Report Type: Spontaneous
  Country: US (occurrence: US)
  Receive Date: 20140117
  Receipt Date: 20140117
  Transmission Date: 20141002
  Serious: No
  Sender: FDA-Public Use
  Company Number: US-GILEAD-2010-0032732

PATIENT
  Sex: Male

DRUGS (6)
  1. ATRIPLA [Suspect]
     Indication: HIV INFECTION
     Route: 048
     Dates: start: 201009, end: 201009
  2. SUSTIVA [Suspect]
     Indication: HIV INFECTION
     Dates: start: 201002, end: 201009
  3. SUSTIVA [Suspect]
     Dates: start: 201009, end: 20110529
  4. EPZICOM [Concomitant]
     Indication: HIV INFECTION
     Dates: start: 201009
  5. DEPAKOTE ER [Concomitant]
     Indication: BIPOLAR DISORDER
  6. LYRICA [Concomitant]
     Indication: BIPOLAR DISORDER

REACTIONS (2)
  - Tremor [Recovered/Resolved]
  - Dyspnoea [Unknown]
